FAERS Safety Report 5908246-8 (Version None)
Quarter: 2008Q4

REPORT INFORMATION
  Report Type: 
  Country: None (occurrence: None)
  Receive Date: 20081006
  Receipt Date: 20080925
  Transmission Date: 20090506
  Serious: Yes (Other)
  Sender: FDA-Public Use
  Company Number: FR-JNJFOC-20080702647

PATIENT
  Sex: Female
  Weight: 50 kg

DRUGS (4)
  1. RISPERDAL [Suspect]
     Route: 048
  2. RISPERDAL [Suspect]
     Route: 048
  3. RISPERDAL [Suspect]
     Indication: HALLUCINATION
     Route: 048
  4. RISPERDAL [Suspect]
     Indication: DELIRIUM
     Route: 048

REACTIONS (1)
  - DYSKINESIA [None]
